FAERS Safety Report 8226343-1 (Version None)
Quarter: 2012Q1

REPORT INFORMATION
  Report Type: 
  Country: None (occurrence: None)
  Receive Date: 20120321
  Receipt Date: 20120313
  Transmission Date: 20120608
  Serious: Yes (Other)
  Sender: FDA-Public Use
  Company Number: US-ASTRAZENECA-2011SE32539

PATIENT
  Age: 77 Year
  Sex: Male
  Weight: 72.6 kg

DRUGS (1)
  1. SEROQUEL [Suspect]
     Route: 048
     Dates: start: 20080101

REACTIONS (1)
  - LUMBAR VERTEBRAL FRACTURE [None]
